FAERS Safety Report 9926081 (Version 1)
Quarter: 2014Q1

REPORT INFORMATION
  Report Type: Spontaneous
  Country: US (occurrence: US)
  Receive Date: 20140226
  Receipt Date: 20140226
  Transmission Date: 20141002
  Serious: Yes (Hospitalization)
  Sender: FDA-Public Use
  Company Number: US-PFIZER INC-2014053067

PATIENT
  Age: 80 Year
  Sex: Female
  Weight: 59.41 kg

DRUGS (12)
  1. CELEBREX [Suspect]
     Dosage: 200 MG, Q DAY
     Route: 048
  2. NEURONTIN [Suspect]
     Indication: NEURALGIA
     Dosage: 300 MG, THREE TIMES A DAY
     Route: 048
  3. TYLENOL [Concomitant]
     Indication: ARTHRALGIA
     Dosage: 650 MG, 2 TIMES A DAY AS NEEDED
     Route: 048
  4. RECLAST [Concomitant]
     Dosage: 5 MG/100 ML, 1 INFUSION YEARLY
  5. CITRACAL + D [Concomitant]
     Dosage: CALCIUM CITRATE 250 MG/ ERGOCALCIFEROL 62.5 MG TWO EVERY DAY
  6. DIOVAN (VALSARTAN) [Concomitant]
     Dosage: 160 MG, DAILY
     Route: 048
  7. SYNTHROID [Concomitant]
     Dosage: 50 UG, QD
     Route: 048
  8. AMBIEN [Concomitant]
     Indication: INSOMNIA
     Dosage: 5 MG, PRN
     Route: 048
  9. LORAZEPAM [Concomitant]
     Dosage: 1 MG, DAILY
     Route: 048
  10. CELEXA [Concomitant]
     Dosage: 10 MG, DAILY
     Route: 048
  11. AMLODIPINE BESYLATE [Concomitant]
     Dosage: 10 MG, DAILY
     Route: 048
  12. CYMBALTA [Concomitant]
     Dosage: 60 MG, DAILY

REACTIONS (12)
  - Urinary tract infection [Unknown]
  - Local swelling [Unknown]
  - Erythema [Unknown]
  - Sinusitis [Unknown]
  - Arthralgia [Unknown]
  - Cough [Unknown]
  - Thirst [Unknown]
  - Hypoaesthesia [Unknown]
  - Paraesthesia [Unknown]
  - Anxiety [Unknown]
  - Insomnia [Unknown]
  - Myalgia [Unknown]
